FAERS Safety Report 18601887 (Version 3)
Quarter: 2021Q2

REPORT INFORMATION
  Report Type: Spontaneous
  Country: US (occurrence: US)
  Receive Date: 20201210
  Receipt Date: 20210615
  Transmission Date: 20210717
  Serious: Yes (Other)
  Sender: FDA-Public Use
  Company Number: US-GILEAD-2020-0507538

PATIENT
  Age: 69 Year
  Sex: Male
  Weight: 83.91 kg

DRUGS (21)
  1. EPIVIR [Concomitant]
     Active Substance: LAMIVUDINE
  2. NORVIR [Concomitant]
     Active Substance: RITONAVIR
  3. PREZCOBIX [Concomitant]
     Active Substance: COBICISTAT\DARUNAVIR ETHANOLATE
  4. VIRACEPT [Concomitant]
     Active Substance: NELFINAVIR MESYLATE
  5. AMLODIPINE [Concomitant]
     Active Substance: AMLODIPINE BESYLATE
  6. ASPIRIN ANALGESIC [Concomitant]
  7. EPZICOM [Concomitant]
     Active Substance: ABACAVIR SULFATE\LAMIVUDINE
  8. KALETRA [Concomitant]
     Active Substance: LOPINAVIR\RITONAVIR
  9. PREZISTA [Concomitant]
     Active Substance: DARUNAVIR ETHANOLATE
  10. IBUPROFEN. [Concomitant]
     Active Substance: IBUPROFEN
  11. VIREAD [Suspect]
     Active Substance: TENOFOVIR DISOPROXIL FUMARATE
     Indication: HIV INFECTION
     Dosage: UNK
     Route: 048
     Dates: start: 2010, end: 2018
  12. ACETAMINOPHEN. [Concomitant]
     Active Substance: ACETAMINOPHEN
  13. INTERFERON ALFA NOS [Concomitant]
     Active Substance: INTERFERON ALFA-2A OR INTERFERON ALFA-2B
  14. ZERIT [Concomitant]
     Active Substance: STAVUDINE
  15. LISINOPRIL. [Concomitant]
     Active Substance: LISINOPRIL
  16. VIREAD [Suspect]
     Active Substance: TENOFOVIR DISOPROXIL FUMARATE
     Dosage: UNK
     Route: 048
     Dates: start: 200212, end: 20170901
  17. VIRAMUNE [Concomitant]
     Active Substance: NEVIRAPINE
  18. ATIVAN [Concomitant]
     Active Substance: LORAZEPAM
  19. VEMLIDY [Concomitant]
     Active Substance: TENOFOVIR ALAFENAMIDE FUMARATE
  20. BIKTARVY [Concomitant]
     Active Substance: BICTEGRAVIR SODIUM\EMTRICITABINE\TENOFOVIR ALAFENAMIDE FUMARATE
  21. PANTOPRAZOLE [Concomitant]
     Active Substance: PANTOPRAZOLE

REACTIONS (10)
  - Chronic kidney disease [Unknown]
  - Multiple fractures [Recovered/Resolved]
  - Lumbar vertebral fracture [Not Recovered/Not Resolved]
  - Ankle fracture [Unknown]
  - Osteoporosis [Not Recovered/Not Resolved]
  - Emotional distress [Unknown]
  - Tooth loss [Unknown]
  - Bone density decreased [Unknown]
  - Wrist fracture [Unknown]
  - Pain [Unknown]

NARRATIVE: CASE EVENT DATE: 201508
